FAERS Safety Report 10705738 (Version 3)
Quarter: 2022Q3

REPORT INFORMATION
  Report Type: Report from Study
  Country: UG (occurrence: UG)
  Receive Date: 20150112
  Receipt Date: 20220821
  Transmission Date: 20221027
  Serious: Yes (Death, Life-Threatening, Other)
  Sender: FDA-Public Use
  Company Number: UG-GLAXOSMITHKLINE-UG2014GSK046238

PATIENT
  Age: 37 Year
  Sex: Male

DRUGS (8)
  1. ZIDOVUDINE [Suspect]
     Active Substance: ZIDOVUDINE
     Dosage: UNK
     Dates: start: 20141217, end: 20141224
  2. LAMIVUDINE [Suspect]
     Active Substance: LAMIVUDINE
     Dosage: UNK
     Dates: start: 20141217, end: 20141224
  3. EFAVIRENZ [Suspect]
     Active Substance: EFAVIRENZ
     Dosage: UNK
     Dates: start: 20141217, end: 20141224
  4. COTRIMOXAZOLE [Suspect]
     Active Substance: SULFAMETHOXAZOLE\TRIMETHOPRIM
     Dosage: UNK
     Dates: start: 20140227, end: 20141224
  5. FLUCONAZOLE [Concomitant]
     Active Substance: FLUCONAZOLE
  6. FERROUS SULFATE\FOLIC ACID [Concomitant]
     Active Substance: FERROUS SULFATE\FOLIC ACID
  7. AMPICLOX [Concomitant]
     Dosage: UNK
     Dates: start: 20141209, end: 20141213
  8. ACYCLOVIR [Concomitant]
     Active Substance: ACYCLOVIR
     Dosage: UNK
     Dates: start: 20141209, end: 20141215

REACTIONS (7)
  - Pneumonia [Fatal]
  - Hepatotoxicity [Fatal]
  - Candida infection [Fatal]
  - Blood creatinine increased [Fatal]
  - Blood bilirubin increased [Fatal]
  - Neutropenia [Fatal]
  - Haemoptysis [Fatal]

NARRATIVE: CASE EVENT DATE: 20141210
